FAERS Safety Report 25699798 (Version 1)
Quarter: 2025Q3

REPORT INFORMATION
  Report Type: Spontaneous
  Country: US (occurrence: None)
  Receive Date: 20250818
  Receipt Date: 20250818
  Transmission Date: 20251021
  Serious: No
  Sender: FDA-CTU
  Company Number: None

PATIENT
  Age: 70 Year
  Sex: Male
  Weight: 133.9 kg

DRUGS (3)
  1. LENALIDOMIDE [Suspect]
     Active Substance: LENALIDOMIDE
     Indication: Plasma cell myeloma
     Dosage: 25 MG DAILY ORAL ?
     Route: 048
     Dates: start: 20250509
  2. DARZALEX FASPRO [Concomitant]
     Active Substance: DARATUMUMAB\HYALURONIDASE-FIHJ
  3. VELCADE [Concomitant]
     Active Substance: BORTEZOMIB

REACTIONS (2)
  - Neutropenia [None]
  - Therapy change [None]

NARRATIVE: CASE EVENT DATE: 20250812
